FAERS Safety Report 6925222-7 (Version None)
Quarter: 2010Q3

REPORT INFORMATION
  Report Type: 
  Country: None (occurrence: None)
  Receive Date: 20100816
  Receipt Date: 20100326
  Transmission Date: 20110219
  Serious: Yes (Death)
  Sender: FDA-Public Use
  Company Number: FR-PFIZER INC-2009231401

PATIENT
  Sex: Male

DRUGS (6)
  1. CAMPTOSAR [Suspect]
     Dosage: UNK
     Route: 042
     Dates: start: 20090216, end: 20090330
  2. FLUOROURACIL [Suspect]
     Indication: COLORECTAL CANCER
     Dosage: UNK
     Route: 042
     Dates: start: 20030101, end: 20090330
  3. ERBITUX [Suspect]
     Dosage: UNK
     Route: 042
     Dates: start: 20090216, end: 20090330
  4. ICAZ [Concomitant]
  5. ZYLORIC ^FAES^ [Concomitant]
  6. FENOFIBRATE [Concomitant]

REACTIONS (8)
  - ASTHENIA [None]
  - DECREASED APPETITE [None]
  - DIARRHOEA [None]
  - MOUTH ULCERATION [None]
  - MULTI-ORGAN FAILURE [None]
  - NEUTROPENIA [None]
  - STOMATITIS [None]
  - VOMITING [None]
